FAERS Safety Report 6701073-3 (Version None)
Quarter: 2010Q2

REPORT INFORMATION
  Report Type: 
  Country: None (occurrence: None)
  Receive Date: 20100428
  Receipt Date: 20100414
  Transmission Date: 20101027
  Serious: Yes (Other)
  Sender: FDA-Public Use
  Company Number: US-ELI_LILLY_AND_COMPANY-US201004005508

PATIENT
  Sex: Female

DRUGS (10)
  1. FORTEO [Suspect]
     Indication: OSTEOPOROSIS
     Dosage: 20 UG, DAILY (1/D)
     Dates: start: 20100201
  2. POTASSIUM CHLORIDE [Concomitant]
     Dosage: 20 MG, DAILY (1/D)
  3. CALCIUM W/VITAMIN D NOS [Concomitant]
     Dosage: 1 D/F, DAILY (1/D)
  4. VITAMIN C [Concomitant]
     Dosage: 500 MG, DAILY (1/D)
  5. DILTIAZEM HCL [Concomitant]
     Dosage: 120 MG, DAILY (1/D)
  6. ASPIRIN [Concomitant]
     Dosage: 81 MG, DAILY (1/D)
  7. LEXAPRO [Concomitant]
     Dosage: 10 MG, DAILY (1/D)
  8. ATIVAN [Concomitant]
     Indication: ANXIETY
     Dosage: 0.5 MG, TWO TIMES PER DAY AS NEEDED
  9. SPIRIVA [Concomitant]
     Dosage: 18 UG, 2/D
  10. FUROSEMIDE [Concomitant]
     Dosage: 20 UG, DAILY (1/D)

REACTIONS (6)
  - CARDIAC DISORDER [None]
  - CHEST DISCOMFORT [None]
  - HEADACHE [None]
  - HYPERTENSION [None]
  - NAUSEA [None]
  - OEDEMA PERIPHERAL [None]
